FAERS Safety Report 17538679 (Version 1)
Quarter: 2020Q1

REPORT INFORMATION
  Report Type: Spontaneous
  Country: US (occurrence: US)
  Receive Date: 20200313
  Receipt Date: 20200313
  Transmission Date: 20200409
  Serious: Yes (Disabling)
  Sender: FDA-Public Use
  Company Number: None

PATIENT
  Age: 56 Year
  Sex: Female
  Weight: 85.5 kg

DRUGS (5)
  1. PAXIL 40MG [Concomitant]
  2. LINZESS WELLBUTRIN [Concomitant]
  3. CHLORTHALIDONE 25MG [Concomitant]
     Active Substance: CHLORTHALIDONE
  4. ANORO INHALER [Concomitant]
  5. MONTELUKAST [Suspect]
     Active Substance: MONTELUKAST SODIUM
     Indication: HYPERSENSITIVITY
     Dosage: ?          QUANTITY:1 TABLET(S);OTHER FREQUENCY:EVERY EVENING;?
     Route: 048
     Dates: start: 20200219, end: 20200312

REACTIONS (4)
  - Aggression [None]
  - Irritability [None]
  - Thinking abnormal [None]
  - Hostility [None]
